FAERS Safety Report 12953545 (Version 2)
Quarter: 2016Q4

REPORT INFORMATION
  Report Type: Spontaneous
  Country: CO (occurrence: CO)
  Receive Date: 20161118
  Receipt Date: 20161219
  Transmission Date: 20170207
  Serious: Yes (Hospitalization)
  Sender: FDA-Public Use
  Company Number: CO-BAXTER-2016BAX057515

PATIENT
  Age: 39 Year
  Sex: Male

DRUGS (3)
  1. VANCOCIN CP INYECTABLE [Suspect]
     Active Substance: VANCOMYCIN HYDROCHLORIDE
     Indication: PERITONITIS
     Dosage: 1 GRAM
     Route: 042
     Dates: start: 20161031, end: 20161107
  2. DIANEAL PD-2 WITH DEXTROSE [Suspect]
     Active Substance: CALCIUM CHLORIDE\DEXTROSE\MAGNESIUM CHLORIDE\SODIUM CHLORIDE\SODIUM LACTATE
     Indication: PERITONEAL DIALYSIS
     Route: 033
     Dates: end: 20161107
  3. AMIKACIN [Suspect]
     Active Substance: AMIKACIN
     Indication: PERITONITIS
     Route: 042
     Dates: start: 20161031, end: 20161107

REACTIONS (5)
  - Peritoneal dialysis complication [Unknown]
  - Peritoneal disorder [Unknown]
  - Condition aggravated [Unknown]
  - Inadequate aseptic technique in use of product [None]
  - Peritonitis [Recovered/Resolved]

NARRATIVE: CASE EVENT DATE: 20161031
